FAERS Safety Report 23381440 (Version 1)
Quarter: 2024Q1

REPORT INFORMATION
  Report Type: Spontaneous
  Country: DK (occurrence: DK)
  Receive Date: 20240109
  Receipt Date: 20240109
  Transmission Date: 20240409
  Serious: Yes (Other)
  Sender: FDA-Public Use
  Company Number: None

PATIENT
  Age: 74 Year
  Sex: Female

DRUGS (4)
  1. CARBOPLATIN [Suspect]
     Active Substance: CARBOPLATIN
     Indication: Lung neoplasm malignant
     Dosage: DOSAGE: 470 MG ACCORDING TO WRITTEN INFORMATION, STRENGTH: 10 MG/ML. 3 SERIES ADMINISTERED
     Dates: start: 202308, end: 202310
  2. NAVELBINE [Suspect]
     Active Substance: VINORELBINE TARTRATE
     Indication: Lung neoplasm malignant
     Dosage: DOSAGE: ACCORDING TO WRITTEN INSTRUCTION, STRENGTH: 20 MG. 3 SERIES ADMINISTERED
     Dates: start: 202308, end: 202310
  3. ALENDRONAT [Concomitant]
     Active Substance: ALENDRONATE SODIUM
     Indication: Osteoporosis
     Dates: start: 20220213
  4. PREDNISOLONE [Concomitant]
     Active Substance: PREDNISOLONE
     Indication: Adverse drug reaction
     Dates: start: 20230919

REACTIONS (5)
  - Sensory disturbance [Unknown]
  - Cyanosis [Recovering/Resolving]
  - Thrombosis [Recovering/Resolving]
  - Paraesthesia [Unknown]
  - Pain in extremity [Recovered/Resolved]

NARRATIVE: CASE EVENT DATE: 20231001
